FAERS Safety Report 7721432-X (Version None)
Quarter: 2011Q3

REPORT INFORMATION
  Report Type: 
  Country: None (occurrence: None)
  Receive Date: 20110831
  Receipt Date: 20110825
  Transmission Date: 20111222
  Serious: Yes (Other)
  Sender: FDA-Public Use
  Company Number: US-SANOFI-AVENTIS-2011SA052468

PATIENT
  Sex: Female

DRUGS (3)
  1. LANTUS [Suspect]
     Indication: DIABETES MELLITUS
     Dosage: DOSE:100 UNIT(S)
     Route: 058
     Dates: end: 20110801
  2. HUMALOG [Suspect]
     Indication: DIABETES MELLITUS
     Route: 065
     Dates: start: 20110801, end: 20110801
  3. LANTUS [Suspect]
     Dosage: DOSE:100 UNIT(S)
     Route: 058
     Dates: start: 20110801

REACTIONS (4)
  - PRESYNCOPE [None]
  - BLOOD GLUCOSE DECREASED [None]
  - HYPOGLYCAEMIA [None]
  - LOSS OF CONSCIOUSNESS [None]
